FAERS Safety Report 19941499 (Version 1)
Quarter: 2021Q4

REPORT INFORMATION
  Report Type: Report from Study
  Country: DE (occurrence: DE)
  Receive Date: 20211011
  Receipt Date: 20211011
  Transmission Date: 20220303
  Serious: Yes (Hospitalization)
  Sender: FDA-Public Use
  Company Number: DE-002147023-PHHO2019DE006020

PATIENT
  Age: 76 Year
  Sex: Female

DRUGS (2)
  1. LETROZOLE [Suspect]
     Active Substance: LETROZOLE
     Indication: Breast cancer metastatic
     Dosage: 2.5 MILLIGRAM
     Route: 048
     Dates: start: 20190508
  2. RIBOCICLIB [Concomitant]
     Active Substance: RIBOCICLIB
     Indication: Breast cancer metastatic
     Dosage: 600 MILLIGRAM
     Route: 048
     Dates: start: 20190508

REACTIONS (2)
  - Urinary tract infection [Recovered/Resolved]
  - Atrial fibrillation [Recovered/Resolved]

NARRATIVE: CASE EVENT DATE: 20190603
